FAERS Safety Report 22226983 (Version 5)
Quarter: 2023Q2

REPORT INFORMATION
  Report Type: Report from Study
  Country: CN (occurrence: None)
  Receive Date: 20230419
  Receipt Date: 20230628
  Transmission Date: 20230722
  Serious: Yes (Hospitalization)
  Sender: FDA-Public Use
  Company Number: CN-ROCHE-3330318

PATIENT
  Age: 58 Year
  Sex: Male
  Weight: 70 kg

DRUGS (7)
  1. TIRAGOLUMAB [Suspect]
     Active Substance: TIRAGOLUMAB
     Indication: Small cell lung cancer extensive stage
     Dosage: ON 22/APR/2023, DOSE LAST STUDY DRUG ADMIN PRIOR AE/SAE
     Route: 042
     Dates: start: 20210506
  2. ATEZOLIZUMAB [Suspect]
     Active Substance: ATEZOLIZUMAB
     Indication: Small cell lung cancer extensive stage
     Dosage: ON 22/MAR/2023, DOSE LAST STUDY DRUG ADMIN PRIOR AE/SAE 1200 MG
     Route: 041
     Dates: start: 20210506
  3. CARBOPLATIN [Suspect]
     Active Substance: CARBOPLATIN
     Indication: Small cell lung cancer extensive stage
     Dosage: ON 08/JUL/2021, DATE OF MOST RECENT DOSE OF STUDY DRUG PRIOR TO AE/SAE 490 MG
     Route: 042
     Dates: start: 20210506
  4. ETOPOSIDE [Suspect]
     Active Substance: ETOPOSIDE
     Indication: Small cell lung cancer extensive stage
     Dosage: ON DAY 1, 2 AND 3 OF EACH 21-DAY CYCLE FOR 4 CYCLES?ON 08/JUL/2021, MOST RECENT DOSE OF STUDY DRUG P
     Route: 042
     Dates: start: 20210506
  5. BACTROBAN [Concomitant]
     Active Substance: MUPIROCIN\MUPIROCIN CALCIUM
     Indication: Rash
     Route: 061
     Dates: start: 20220526
  6. PEVISONE [Concomitant]
     Indication: Rash
     Route: 061
     Dates: start: 20220526
  7. SODIUM CHLORIDE [Concomitant]
     Active Substance: SODIUM CHLORIDE
     Route: 042
     Dates: start: 20230411, end: 20230412

REACTIONS (2)
  - Hyperglycaemia [Not Recovered/Not Resolved]
  - Ketoacidosis [Not Recovered/Not Resolved]

NARRATIVE: CASE EVENT DATE: 20230411
